FAERS Safety Report 18752638 (Version 2)
Quarter: 2021Q2

REPORT INFORMATION
  Report Type: Spontaneous
  Country: US (occurrence: US)
  Receive Date: 20210118
  Receipt Date: 20210520
  Transmission Date: 20210717
  Serious: Yes (Other)
  Sender: FDA-Public Use
  Company Number: US-PURDUE-USA-2020-0198537

PATIENT
  Sex: Male

DRUGS (5)
  1. OXYCONTIN [Suspect]
     Active Substance: OXYCODONE HYDROCHLORIDE
     Indication: INJURY
     Dosage: UNKNOWN
     Route: 048
  2. HYDROCODONE BITARTRATE AND ACETAMINOPHEN [Suspect]
     Active Substance: ACETAMINOPHEN\HYDROCODONE BITARTRATE
     Indication: INJURY
     Dosage: UNKNOWN
     Route: 048
  3. OXYCODONE/ ACETAMINOPHEN TABLETS [Suspect]
     Active Substance: ACETAMINOPHEN\OXYCODONE HYDROCHLORIDE
     Indication: INJURY
     Dosage: 1 DF (5/325 MG), UNK
     Route: 048
  4. BUPRENORPHINE TRANSDERMAL PATCH [Suspect]
     Active Substance: BUPRENORPHINE
     Indication: INJURY
     Dosage: UNKNOWN
     Route: 062
  5. OXYFAST [Suspect]
     Active Substance: OXYCODONE
     Indication: INJURY
     Dosage: UNKNOWN
     Route: 048

REACTIONS (3)
  - Suicide attempt [Unknown]
  - Overdose [Unknown]
  - Drug dependence [Unknown]
